FAERS Safety Report 12392739 (Version 4)
Quarter: 2016Q4

REPORT INFORMATION
  Report Type: Report from Study
  Country: US (occurrence: US)
  Receive Date: 20160523
  Receipt Date: 20161122
  Transmission Date: 20170207
  Serious: Yes (Other)
  Sender: FDA-Public Use
  Company Number: US-BAYER-2016-093335

PATIENT
  Sex: Female
  Weight: 71.66 kg

DRUGS (4)
  1. DILT-XR [Concomitant]
     Active Substance: DILTIAZEM
     Dosage: UNK
  2. ADEMPAS [Suspect]
     Active Substance: RIOCIGUAT
     Indication: PULMONARY ARTERIAL HYPERTENSION
     Dosage: 1 MG, TID
     Route: 048
  3. ADEMPAS [Suspect]
     Active Substance: RIOCIGUAT
     Indication: PULMONARY ARTERIAL HYPERTENSION
     Dosage: 0.5 MG, TID
  4. ADEMPAS [Suspect]
     Active Substance: RIOCIGUAT
     Indication: PULMONARY ARTERIAL HYPERTENSION
     Dosage: UNK
     Dates: start: 20160421

REACTIONS (6)
  - Chest pain [Not Recovered/Not Resolved]
  - Headache [Unknown]
  - Peripheral swelling [Unknown]
  - Rash [Unknown]
  - Urticaria [Recovered/Resolved]
  - Adverse drug reaction [None]
